FAERS Safety Report 14822227 (Version 1)
Quarter: 2018Q2

REPORT INFORMATION
  Report Type: Report from Study
  Country: US (occurrence: BR)
  Receive Date: 20180427
  Receipt Date: 20180427
  Transmission Date: 20180711
  Serious: Yes (Death, Other)
  Sender: FDA-Public Use
  Company Number: US-SUNOVION-2018SUN001618

PATIENT
  Sex: Male

DRUGS (1)
  1. INDACATEROL AND GLYCOPYRROLATE [Suspect]
     Active Substance: GLYCOPYRROLATE\INDACATEROL MALEATE
     Indication: EMPHYSEMA
     Dosage: 1 DF, QD (50MCG GLYCOPYRROLATE/110MCG INDACATEROL)
     Route: 055

REACTIONS (3)
  - Condition aggravated [Fatal]
  - Lung neoplasm malignant [Fatal]
  - Emphysema [Fatal]
